FAERS Safety Report 7302925-6 (Version None)
Quarter: 2011Q1

REPORT INFORMATION
  Report Type: 
  Country: None (occurrence: None)
  Receive Date: 20110218
  Receipt Date: 20110209
  Transmission Date: 20110831
  Serious: Yes (Other)
  Sender: FDA-Public Use
  Company Number: US-ASTRAZENECA-2011SE07953

PATIENT
  Sex: Male

DRUGS (1)
  1. ZOLADEX HORMONE IMPLANT LA [Suspect]
     Route: 058
     Dates: start: 20100221, end: 20110118

REACTIONS (17)
  - VISUAL IMPAIRMENT [None]
  - FEELING COLD [None]
  - FATIGUE [None]
  - BLOOD MAGNESIUM DECREASED [None]
  - URINE FLOW DECREASED [None]
  - HALLUCINATION [None]
  - BLOOD PRESSURE FLUCTUATION [None]
  - HAEMORRHAGE [None]
  - BLOOD CALCIUM DECREASED [None]
  - HYPERHIDROSIS [None]
  - HALLUCINATION, AUDITORY [None]
  - ABNORMAL DREAMS [None]
  - HEADACHE [None]
  - HOT FLUSH [None]
  - CONFUSIONAL STATE [None]
  - DYSPNOEA [None]
  - AFFECTIVE DISORDER [None]
